FAERS Safety Report 7604327-1 (Version None)
Quarter: 2011Q3

REPORT INFORMATION
  Report Type: 
  Country: None (occurrence: None)
  Receive Date: 20110712
  Receipt Date: 20110708
  Transmission Date: 20111222
  Serious: Yes (Hospitalization, Other)
  Sender: FDA-Public Use
  Company Number: PHHO2011CH06763

PATIENT
  Sex: Female

DRUGS (2)
  1. EVEROLIMUS [Suspect]
     Indication: HEPATIC NEOPLASM MALIGNANT
     Dosage: 5 MG, DAILY
     Route: 048
     Dates: start: 20110408, end: 20110411
  2. SORAFENIB [Suspect]
     Indication: HEPATIC NEOPLASM MALIGNANT
     Dosage: 800 MG, UNK
     Route: 048
     Dates: start: 20110405, end: 20110411

REACTIONS (3)
  - DIVERTICULITIS [None]
  - DIVERTICULAR PERFORATION [None]
  - PULMONARY EMBOLISM [None]
